FAERS Safety Report 8453142-8 (Version None)
Quarter: 2012Q2

REPORT INFORMATION
  Report Type: 
  Country: None (occurrence: None)
  Receive Date: 20120620
  Receipt Date: 20120508
  Transmission Date: 20120825
  Serious: No
  Sender: FDA-Public Use
  Company Number: US-VERTEX PHARMACEUTICALS INC.-AE-2012-006729

PATIENT
  Sex: Male
  Weight: 83.082 kg

DRUGS (8)
  1. TRUVADA [Concomitant]
     Indication: HIV INFECTION
     Route: 048
  2. WARFARIN SODIUM [Concomitant]
     Indication: ANTICOAGULANT THERAPY
     Route: 048
  3. PEGASYS [Concomitant]
     Indication: HEPATITIS C
     Route: 058
     Dates: start: 20120401
  4. INCIVEK [Suspect]
     Indication: HEPATITIS C
     Route: 048
     Dates: start: 20120401
  5. RIBAVIRIN [Concomitant]
     Indication: HEPATITIS C
     Route: 048
     Dates: start: 20120401
  6. TRUVADA [Concomitant]
     Route: 048
  7. ISENTRESS [Concomitant]
     Indication: HIV INFECTION
     Route: 048
  8. FISH OIL [Concomitant]
     Indication: MEDICAL DIET
     Route: 048

REACTIONS (2)
  - OFF LABEL USE [None]
  - INAPPROPRIATE SCHEDULE OF DRUG ADMINISTRATION [None]
